FAERS Safety Report 19151406 (Version 1)
Quarter: 2021Q2

REPORT INFORMATION
  Report Type: Spontaneous
  Country: US (occurrence: US)
  Receive Date: 20210419
  Receipt Date: 20210419
  Transmission Date: 20210717
  Serious: Yes (Hospitalization, Other)
  Sender: FDA-Public Use
  Company Number: US-TEVA-2021-US-1901271

PATIENT
  Age: 34 Year

DRUGS (1)
  1. APRI [Suspect]
     Active Substance: DESOGESTREL\ETHINYL ESTRADIOL
     Indication: CONTRACEPTION
     Route: 065

REACTIONS (7)
  - Cerebral venous sinus thrombosis [Unknown]
  - Loss of consciousness [Unknown]
  - Cerebral haemorrhage [Unknown]
  - Seizure [Unknown]
  - Cerebral thrombosis [Unknown]
  - Headache [Unknown]
  - Metamorphopsia [Unknown]

NARRATIVE: CASE EVENT DATE: 20200701
